FAERS Safety Report 8558708-2 (Version None)
Quarter: 2012Q3

REPORT INFORMATION
  Report Type: 
  Country: None (occurrence: None)
  Receive Date: 20120801
  Receipt Date: 20120723
  Transmission Date: 20120928
  Serious: Yes (Other)
  Sender: FDA-Public Use
  Company Number: US-009507513-1207USA011150

PATIENT

DRUGS (1)
  1. SIMVASTATIN [Suspect]
     Dosage: 40 MG, QW
     Route: 048

REACTIONS (6)
  - MYALGIA [None]
  - OEDEMA PERIPHERAL [None]
  - ARTHRALGIA [None]
  - SWOLLEN TONGUE [None]
  - IMPAIRED WORK ABILITY [None]
  - JOINT SWELLING [None]
